FAERS Safety Report 22625293 (Version 5)
Quarter: 2024Q1

REPORT INFORMATION
  Report Type: Spontaneous
  Country: US (occurrence: US)
  Receive Date: 20230621
  Receipt Date: 20240320
  Transmission Date: 20240410
  Serious: No
  Sender: FDA-Public Use
  Company Number: US-PFIZER INC-202300222724

PATIENT
  Age: 8 Year
  Sex: Male
  Weight: 21 kg

DRUGS (14)
  1. OXBRYTA [Suspect]
     Active Substance: VOXELOTOR
     Dosage: UNK
  2. OXBRYTA [Suspect]
     Active Substance: VOXELOTOR
     Dosage: 900 MG, DAILY
     Route: 048
  3. OXBRYTA [Suspect]
     Active Substance: VOXELOTOR
     Dosage: TAKE 3 TABLETS BY MOUTH DAILY
     Route: 048
     Dates: start: 20240109
  4. ACETAMINOPHEN [Concomitant]
     Active Substance: ACETAMINOPHEN
     Indication: Pain
     Dosage: 160 MG/5 ML, 10 ML=320 MG PO Q 4 HOURS PRN PAIN NOT TO EXCEED 5 DOSES/DAY
     Route: 048
     Dates: start: 20240109
  5. ACETAMINOPHEN [Concomitant]
     Active Substance: ACETAMINOPHEN
     Dosage: 316.5 MG, LIQUID, 1X/DAY
     Route: 048
     Dates: end: 20240116
  6. BACITRACIN [Concomitant]
     Active Substance: BACITRACIN
     Indication: Sickle cell disease
     Dosage: 1 APP, QID, X 7 DAYS
     Route: 061
     Dates: start: 20240116
  7. BACITRACIN [Concomitant]
     Active Substance: BACITRACIN
     Indication: Pyrexia
  8. CLINDAMYCIN [Concomitant]
     Active Substance: CLINDAMYCIN
     Indication: Sickle cell disease
     Dosage: 150 MG TID, X 7 DAYS
     Route: 048
     Dates: start: 20240116, end: 20240116
  9. CLINDAMYCIN [Concomitant]
     Active Substance: CLINDAMYCIN
     Indication: Pyrexia
  10. FOLIC ACID [Concomitant]
     Active Substance: FOLIC ACID
     Dosage: 1 MG, DAILY
     Route: 048
     Dates: start: 20240109
  11. HYDROXYUREA [Concomitant]
     Active Substance: HYDROXYUREA
     Dosage: 500 MG, DAILY
     Route: 048
     Dates: start: 20240109
  12. IBUPROFEN [Concomitant]
     Active Substance: IBUPROFEN
     Indication: Pain
     Dosage: 100 MG/5 ML, 10ML=200 MG PO Q 6 HOURS PRN PAIN
     Route: 048
     Dates: start: 20240109
  13. NARCAN [Concomitant]
     Active Substance: NALOXONE HYDROCHLORIDE
     Dosage: 4 MG/0.1 ML, FOR ACCIDENTAL OXYCODONE OVERDOSE. MAY REPEAT 2 TO 3 MINUTES
     Dates: start: 20240109
  14. OXYCODONE [Concomitant]
     Active Substance: OXYCODONE\OXYCODONE HYDROCHLORIDE
     Indication: Pain
     Dosage: 1/2 TAB PO Q 4 HOURS
     Route: 048
     Dates: start: 20240109

REACTIONS (3)
  - Weight increased [Unknown]
  - Balanoposthitis [Unknown]
  - Dysuria [Recovering/Resolving]
